FAERS Safety Report 5538077-2 (Version None)
Quarter: 2007Q4

REPORT INFORMATION
  Report Type: 
  Country: None (occurrence: None)
  Receive Date: 20071207
  Receipt Date: 20071203
  Transmission Date: 20080405
  Serious: Yes (Hospitalization, Disabling)
  Sender: FDA-Public Use
  Company Number: JP-BOEHRINGER INGELHEIM PHARMACEUTICALS, INC.-2007-BP-25459NB

PATIENT
  Sex: Male
  Weight: 83.4 kg

DRUGS (5)
  1. MICARDIS [Suspect]
     Indication: HYPERTENSION
     Route: 048
     Dates: start: 20060913, end: 20070727
  2. METFORMIN HYDROCHLORIDE [Concomitant]
     Route: 048
     Dates: start: 20000303
  3. RABEPRAZOLE SODIUM [Concomitant]
     Route: 048
     Dates: start: 20051202
  4. MUCOSTA [Concomitant]
     Route: 048
     Dates: start: 20051202
  5. URSO 250 [Concomitant]
     Route: 048
     Dates: start: 20051202

REACTIONS (1)
  - ATRIOVENTRICULAR BLOCK COMPLETE [None]
